FAERS Safety Report 12735373 (Version 4)
Quarter: 2016Q4

REPORT INFORMATION
  Report Type: Spontaneous
  Country: JP (occurrence: JP)
  Receive Date: 20160913
  Receipt Date: 20161123
  Transmission Date: 20170207
  Serious: Yes (Hospitalization, Other)
  Sender: FDA-Public Use
  Company Number: JP-009507513-1609JPN004323

PATIENT
  Age: 73 Year
  Sex: Female
  Weight: 48 kg

DRUGS (15)
  1. ACELIO [Concomitant]
     Active Substance: ACETAMINOPHEN
     Route: 042
  2. SEPAMIT-R CAPSULES 20 [Concomitant]
     Route: 048
  3. SODIUM CHLORIDE. [Concomitant]
     Active Substance: SODIUM CHLORIDE
     Route: 051
  4. TIENAM FOR INTRAVENOUS DRIP INFUSION (KIT) [Suspect]
     Active Substance: CILASTATIN SODIUM\IMIPENEM
     Indication: SEPSIS
     Dosage: 0.5 G, TID
     Route: 041
     Dates: start: 20160811, end: 20160815
  5. ELNEOPA NO. 1 [Concomitant]
     Indication: NUTRITIONAL SUPPLEMENTATION
     Dosage: UNK
     Route: 041
     Dates: start: 20160805, end: 20160831
  6. MOSAPRIDE CITRATE [Concomitant]
     Active Substance: MOSAPRIDE CITRATE
     Route: 048
  7. CEFMETAZOLE SODIUM [Concomitant]
     Active Substance: CEFMETAZOLE SODIUM
     Dosage: UNK
     Route: 051
     Dates: start: 20160718
  8. FAMOTIDINE. [Concomitant]
     Active Substance: FAMOTIDINE
     Route: 048
  9. DAI-KENCHU-TO [Concomitant]
     Active Substance: MALTOSE
     Route: 048
  10. FESIN [Concomitant]
     Active Substance: IRON SUCROSE
     Indication: ANAEMIA
     Dosage: 80 MG, UNK
     Route: 041
     Dates: start: 20160731, end: 20160816
  11. CIPROFLOXACIN. [Concomitant]
     Active Substance: CIPROFLOXACIN
     Dosage: 300 MG, BID
     Route: 051
     Dates: start: 20160728, end: 20160804
  12. TIENAM FOR INTRAVENOUS DRIP INFUSION (KIT) [Suspect]
     Active Substance: CILASTATIN SODIUM\IMIPENEM
     Indication: PNEUMONIA
     Dosage: 0.5 G, BID
     Route: 041
     Dates: start: 20160810, end: 20160810
  13. ECABET SODIUM [Concomitant]
     Active Substance: ECABET SODIUM
     Route: 048
  14. DORIPENEM [Concomitant]
     Active Substance: DORIPENEM
     Dosage: 0.5 MG, TID
     Route: 051
     Dates: start: 20160805, end: 20160809
  15. INTRALIPOS [Concomitant]
     Active Substance: SOYBEAN OIL
     Indication: NUTRITIONAL SUPPLEMENTATION
     Dosage: 100 UNK, UNK
     Route: 041
     Dates: start: 20160716, end: 20160829

REACTIONS (1)
  - Toxic skin eruption [Recovered/Resolved]

NARRATIVE: CASE EVENT DATE: 20160815
